FAERS Safety Report 5767637-9 (Version None)
Quarter: 2008Q2

REPORT INFORMATION
  Report Type: 
  Country: None (occurrence: None)
  Receive Date: 20080612
  Receipt Date: 20080602
  Transmission Date: 20081010
  Serious: Yes (Hospitalization, Other)
  Sender: FDA-Public Use
  Company Number: US-PFIZER INC-2008047174

PATIENT
  Sex: Male

DRUGS (2)
  1. CHANTIX [Suspect]
     Indication: SMOKING CESSATION THERAPY
     Dates: start: 20071029, end: 20070101
  2. PROZAC [Concomitant]

REACTIONS (4)
  - AGGRESSION [None]
  - ANGER [None]
  - DEPRESSION [None]
  - SUICIDAL IDEATION [None]
